FAERS Safety Report 10282070 (Version 1)
Quarter: 2014Q3

REPORT INFORMATION
  Report Type: Spontaneous
  Country: FR (occurrence: FR)
  Receive Date: 20140707
  Receipt Date: 20140707
  Transmission Date: 20150326
  Serious: Yes (Other)
  Sender: FDA-Public Use
  Company Number: FR-VIIV HEALTHCARE LIMITED-B1007667A

PATIENT
  Age: 39 Year
  Sex: Female

DRUGS (11)
  1. ADIAZINE [Suspect]
     Active Substance: SULFADIAZINE
     Indication: CEREBRAL TOXOPLASMOSIS
     Dosage: 1G SIX TIMES PER DAY
     Route: 048
     Dates: start: 20140425, end: 20140527
  2. ZAMUDOL [Suspect]
     Active Substance: TRAMADOL HYDROCHLORIDE
     Indication: PRODUCT USED FOR UNKNOWN INDICATION
     Dosage: 50MG AS REQUIRED
     Route: 048
     Dates: start: 20140522, end: 20140525
  3. VALGANCYCLOVIR [Concomitant]
     Active Substance: VALGANCICLOVIR
     Dosage: 2TAB TWICE PER DAY
     Route: 048
     Dates: start: 20140506, end: 201405
  4. PRIMPERAN [Suspect]
     Active Substance: METOCLOPRAMIDE HYDROCHLORIDE
     Indication: PRODUCT USED FOR UNKNOWN INDICATION
     Dosage: 10MG AS REQUIRED
     Route: 048
     Dates: start: 20140525
  5. PYRIMETHAMINE [Concomitant]
     Active Substance: PYRIMETHAMINE
     Dosage: 50MG PER DAY
     Dates: start: 20140420
  6. CEFTRIAXONE. [Concomitant]
     Active Substance: CEFTRIAXONE
     Indication: ANTIBIOTIC THERAPY
     Dosage: 2G TWICE PER DAY
     Route: 065
     Dates: start: 20140420, end: 20140502
  7. TIVICAY [Suspect]
     Active Substance: DOLUTEGRAVIR SODIUM
     Indication: HIV INFECTION
     Dosage: 50MG TWICE PER DAY
     Route: 048
     Dates: start: 20140430, end: 20140530
  8. CLINDAMYCIN [Suspect]
     Active Substance: CLINDAMYCIN\CLINDAMYCIN PHOSPHATE
     Indication: CEREBRAL TOXOPLASMOSIS
     Dosage: 600MG THREE TIMES PER DAY
     Route: 048
     Dates: start: 20140527, end: 20140608
  9. AMOXICILLIN. [Concomitant]
     Active Substance: AMOXICILLIN
     Indication: ANTIBIOTIC THERAPY
     Route: 065
     Dates: start: 20140420
  10. PIPERACILLIN AND TAZOBACTAM [Suspect]
     Active Substance: PIPERACILLIN SODIUM\TAZOBACTAM SODIUM
     Indication: PRODUCT USED FOR UNKNOWN INDICATION
     Dosage: 4G THREE TIMES PER DAY
     Route: 042
     Dates: start: 20140509
  11. SULFADIAZINE. [Concomitant]
     Active Substance: SULFADIAZINE
     Dosage: 1G SIX TIMES PER DAY
     Route: 065
     Dates: start: 20140420

REACTIONS (1)
  - Cholestasis [Recovering/Resolving]

NARRATIVE: CASE EVENT DATE: 20140601
